FAERS Safety Report 14927672 (Version 3)
Quarter: 2019Q1

REPORT INFORMATION
  Report Type: Spontaneous
  Country: US (occurrence: US)
  Receive Date: 20180523
  Receipt Date: 20190326
  Transmission Date: 20190417
  Serious: Yes (Other)
  Sender: FDA-Public Use
  Company Number: US-ASTRAZENECA-2018SE63062

PATIENT
  Age: 19728 Day
  Sex: Female

DRUGS (46)
  1. IBUPROFEN. [Concomitant]
     Active Substance: IBUPROFEN
  2. AZITHROMYCIN ANHYDROUS. [Concomitant]
     Active Substance: AZITHROMYCIN ANHYDROUS
  3. NAPROXEN. [Concomitant]
     Active Substance: NAPROXEN
  4. BYETTA [Concomitant]
     Active Substance: EXENATIDE
  5. AMLODIPINE [Concomitant]
     Active Substance: AMLODIPINE BESYLATE
  6. MELOXICAM. [Concomitant]
     Active Substance: MELOXICAM
  7. MONTELUKAST [Concomitant]
     Active Substance: MONTELUKAST SODIUM
  8. SINGULAIR [Concomitant]
     Active Substance: MONTELUKAST SODIUM
  9. ATIVAN [Concomitant]
     Active Substance: LORAZEPAM
  10. NEXIUM [Suspect]
     Active Substance: ESOMEPRAZOLE MAGNESIUM
     Indication: GASTROOESOPHAGEAL REFLUX DISEASE
     Route: 048
     Dates: start: 20090818
  11. NEXIUM [Suspect]
     Active Substance: ESOMEPRAZOLE MAGNESIUM
     Indication: GASTROOESOPHAGEAL REFLUX DISEASE
     Route: 048
     Dates: start: 2015
  12. NEXIUM [Suspect]
     Active Substance: ESOMEPRAZOLE MAGNESIUM
     Indication: GASTROOESOPHAGEAL REFLUX DISEASE
     Dosage: GENERIC
     Route: 065
     Dates: start: 2015
  13. CYCLOBENZAPRINE. [Concomitant]
     Active Substance: CYCLOBENZAPRINE
  14. DIFLUNISAL. [Concomitant]
     Active Substance: DIFLUNISAL
  15. AMLODIPINE BESYLATE. [Concomitant]
     Active Substance: AMLODIPINE BESYLATE
  16. DETROL [Concomitant]
     Active Substance: TOLTERODINE TARTRATE
  17. DIPHENHYDRAMINE. [Concomitant]
     Active Substance: DIPHENHYDRAMINE
  18. PRILOSEC [Concomitant]
     Active Substance: OMEPRAZOLE MAGNESIUM
  19. ATORVASTATIN [Concomitant]
     Active Substance: ATORVASTATIN
  20. MONTELUKAST [Concomitant]
     Active Substance: MONTELUKAST SODIUM
  21. HYDROCODONE-APAP [Concomitant]
     Active Substance: ACETAMINOPHEN\HYDROCODONE
  22. AMOXICILLIN. [Concomitant]
     Active Substance: AMOXICILLIN
  23. FENOFIBRATE. [Concomitant]
     Active Substance: FENOFIBRATE
  24. PROPULSID [Concomitant]
     Active Substance: CISAPRIDE
  25. LASIX [Concomitant]
     Active Substance: FUROSEMIDE
  26. LISINOPRIL. [Concomitant]
     Active Substance: LISINOPRIL
  27. SULINDAC. [Concomitant]
     Active Substance: SULINDAC
  28. ACTONEL [Concomitant]
     Active Substance: RISEDRONATE SODIUM
  29. MICRO-K [Concomitant]
     Active Substance: POTASSIUM CHLORIDE
  30. CARVEDILOL. [Concomitant]
     Active Substance: CARVEDILOL
  31. VITAMIN D [Concomitant]
     Active Substance: CHOLECALCIFEROL
  32. ACTOS [Concomitant]
     Active Substance: PIOGLITAZONE HYDROCHLORIDE
  33. CEPHALEXIN. [Concomitant]
     Active Substance: CEPHALEXIN
  34. ALPRAZOLAM. [Concomitant]
     Active Substance: ALPRAZOLAM
  35. MELOXICAM. [Concomitant]
     Active Substance: MELOXICAM
  36. TRIAMTERENE-HCTZ [Concomitant]
     Active Substance: HYDROCHLOROTHIAZIDE\TRIAMTERENE
  37. METFORMIN [Concomitant]
     Active Substance: METFORMIN HYDROCHLORIDE
  38. NEXIUM [Suspect]
     Active Substance: ESOMEPRAZOLE MAGNESIUM
     Indication: GASTROOESOPHAGEAL REFLUX DISEASE
     Route: 048
     Dates: start: 2005, end: 2016
  39. GABAPENTIN. [Concomitant]
     Active Substance: GABAPENTIN
  40. ASPIRIN. [Concomitant]
     Active Substance: ASPIRIN
  41. TRAMADOL. [Concomitant]
     Active Substance: TRAMADOL
  42. DIAZEPAM. [Concomitant]
     Active Substance: DIAZEPAM
  43. CIPROFLOXACIN. [Concomitant]
     Active Substance: CIPROFLOXACIN
  44. PROVENTIL [Concomitant]
     Active Substance: ALBUTEROL
  45. AZMACORT [Concomitant]
     Active Substance: TRIAMCINOLONE ACETONIDE
  46. TOLTERODINE [Concomitant]
     Active Substance: TOLTERODINE

REACTIONS (4)
  - Chronic kidney disease [Unknown]
  - Acute kidney injury [Unknown]
  - Renal failure [Unknown]
  - Renal injury [Unknown]

NARRATIVE: CASE EVENT DATE: 20090813
